FAERS Safety Report 24548875 (Version 2)
Quarter: 2024Q4

REPORT INFORMATION
  Report Type: Other
  Country: US (occurrence: US)
  Receive Date: 20241025
  Receipt Date: 20241105
  Transmission Date: 20250114
  Serious: Yes (Life-Threatening, Hospitalization)
  Sender: ALVOGEN
  Company Number: US-ALVOGEN-2024095721

PATIENT
  Age: 45 Year
  Sex: Male

DRUGS (12)
  1. BUPRENORPHINE\NALOXONE [Suspect]
     Active Substance: BUPRENORPHINE\NALOXONE
     Indication: Product used for unknown indication
     Dosage: 16 MG/4 MG DAILY
  2. PREGABALIN [Suspect]
     Active Substance: PREGABALIN
     Indication: Product used for unknown indication
     Dosage: 200 MG THREE TIMES A DAY FOR SEVERAL WEEKS
  3. FENTANYL [Suspect]
     Active Substance: FENTANYL
     Indication: Endotracheal intubation
     Dosage: 2 MCG/KG INTRAVENOUS (IV)
     Route: 042
  4. FENTANYL [Suspect]
     Active Substance: FENTANYL
     Indication: Endotracheal intubation
     Dosage: DOSE ADJUSTED, RANGING FROM 0.7 MCG/KG/H
     Route: 042
  5. AMITRIPTYLINE [Suspect]
     Active Substance: AMITRIPTYLINE
     Indication: Product used for unknown indication
     Dosage: DAILY
  6. PROPOFOL [Concomitant]
     Active Substance: PROPOFOL
     Indication: Endotracheal intubation
     Dosage: 3 MG/KG
  7. PROPOFOL [Concomitant]
     Active Substance: PROPOFOL
     Indication: Endotracheal intubation
     Dosage: DOSE ADJUSTED, RANGING FROM 1 TO 3 MG/KG/H
  8. CEFTRIAXONE [Concomitant]
     Active Substance: CEFTRIAXONE
     Indication: Antibiotic therapy
     Dosage: INTRAVENOUS 1 G IN THE ED
     Route: 042
  9. CEFTRIAXONE [Concomitant]
     Active Substance: CEFTRIAXONE
     Indication: Antibiotic therapy
     Dosage: 2 G IV Q12H, DUE TO CONCERNS OF MENINGITIS
     Route: 042
  10. AZITHROMYCIN [Concomitant]
     Active Substance: AZITHROMYCIN
     Indication: Antibiotic therapy
     Dosage: ORAL 500 MG IN THE ED
     Route: 048
  11. AMPICILLIN [Concomitant]
     Active Substance: AMPICILLIN
     Indication: Antibiotic therapy
     Dosage: 2 G IV Q6H, DUE TO CONCERNS OF MENINGITIS
     Route: 042
  12. ACYCLOVIR [Concomitant]
     Active Substance: ACYCLOVIR
     Indication: Antibiotic therapy
     Dosage: 1,450 Q12H, DUE TO CONCERNS OF MENINGITIS
     Route: 042

REACTIONS (2)
  - Serotonin syndrome [Recovered/Resolved]
  - Drug interaction [Unknown]
